FAERS Safety Report 17300071 (Version 1)
Quarter: 2020Q1

REPORT INFORMATION
  Report Type: Spontaneous
  Country: US (occurrence: US)
  Receive Date: 20200103
  Receipt Date: 20200103
  Transmission Date: 20200409
  Serious: Yes (Other)
  Sender: FDA-Public Use
  Company Number: None

PATIENT
  Age: 43 Year
  Sex: Female
  Weight: 99.79 kg

DRUGS (1)
  1. PREGABALIN 75MG CAP [Suspect]
     Active Substance: PREGABALIN
     Route: 048
     Dates: start: 20191003

REACTIONS (4)
  - Pain [None]
  - Fibromyalgia [None]
  - Abdominal pain upper [None]
  - Product substitution issue [None]

NARRATIVE: CASE EVENT DATE: 201910
